FAERS Safety Report 21389575 (Version 1)
Quarter: 2022Q3

REPORT INFORMATION
  Report Type: Spontaneous
  Country: DE (occurrence: DE)
  Receive Date: 20220929
  Receipt Date: 20220929
  Transmission Date: 20221027
  Serious: Yes (Hospitalization)
  Sender: FDA-Public Use
  Company Number: DE-ADRED-07030-01

PATIENT
  Age: 72 Year
  Sex: Male
  Weight: 70 kg

DRUGS (16)
  1. PREGABALIN [Interacting]
     Active Substance: PREGABALIN
     Indication: Product used for unknown indication
     Dosage: 25 MG, 1-0-1-0, KAPSELN
     Route: 048
  2. RAMIPRIL [Interacting]
     Active Substance: RAMIPRIL
     Indication: Product used for unknown indication
     Dosage: 5 MG, PAUSIERT, TABLETTEN?5 MG, PAUSED, TABLETS
     Route: 048
  3. XIPAMIDE [Suspect]
     Active Substance: XIPAMIDE
     Indication: Product used for unknown indication
     Dosage: 10 MG, 1-0-0-0, TABLETTEN
     Route: 048
  4. METFORMIN [Interacting]
     Active Substance: METFORMIN HYDROCHLORIDE
     Indication: Product used for unknown indication
     Dosage: 500 MG, 1-0-1-0, TABLETTEN
     Route: 048
  5. ATORVASTATIN [Concomitant]
     Active Substance: ATORVASTATIN
     Indication: Product used for unknown indication
     Dosage: 10 MG, 0-0-1-0, TABLETTEN
     Route: 048
  6. TAMSULOSIN [Concomitant]
     Active Substance: TAMSULOSIN
     Indication: Product used for unknown indication
     Dosage: 0.4 MG, 0-0-1-0, RETARD-TABLETTEN
     Route: 048
  7. NALOXONE HYDROCHLORIDE\TILIDINE HYDROCHLORIDE [Concomitant]
     Active Substance: NALOXONE HYDROCHLORIDE\TILIDINE HYDROCHLORIDE
     Indication: Product used for unknown indication
     Dosage: 4|50 MG, 1-1-1-0, RETARD-TABLETTEN
     Route: 048
  8. PANTOPRAZOLE [Concomitant]
     Active Substance: PANTOPRAZOLE
     Indication: Product used for unknown indication
     Dosage: 40 MG, 1-0-1-0, TABLETTEN
     Route: 048
  9. Kalinor [Concomitant]
     Indication: Product used for unknown indication
     Dosage: 1-1-0-0, BRAUSETABLETTEN?1-1-0-0, EFFERVESCENT TABLETS
     Route: 048
  10. ALBUTEROL [Concomitant]
     Active Substance: ALBUTEROL
     Indication: Product used for unknown indication
     Dosage: BEDARF, DOSIERAEROSOL??DEMAND, METERED DOSE INHALER
     Route: 055
  11. METOCLOPRAMIDE [Concomitant]
     Active Substance: METOCLOPRAMIDE
     Indication: Product used for unknown indication
     Dosage: 10 MG, 1-1-1-0, TABLETTEN
     Route: 048
  12. Laxans-ratiopharm 7,5mg/ml Pico [Concomitant]
     Indication: Product used for unknown indication
     Dosage: 20-20-0-0, TROPFEN?20-20-0-0, DROPS
     Route: 048
  13. POLYETHYLENE GLYCOL 3350\POTASSIUM CHLORIDE\SODIUM BICARBONATE\SODIUM [Concomitant]
     Active Substance: POLYETHYLENE GLYCOL 3350\POTASSIUM CHLORIDE\SODIUM BICARBONATE\SODIUM CHLORIDE
     Indication: Product used for unknown indication
     Dosage: 1-0-0-0, PULVER
  14. ASPIRIN [Concomitant]
     Active Substance: ASPIRIN
     Indication: Product used for unknown indication
     Dosage: 100 MG, 0-1-0-0, TABLETTEN
     Route: 048
  15. Ultibro Breezhaler 85Mikrogramm/45Mikrogramm [Concomitant]
     Indication: Product used for unknown indication
     Dosage: 1-0-0-0
     Route: 055
  16. METAMIZOL [Concomitant]
     Active Substance: METAMIZOLE SODIUM
     Indication: Product used for unknown indication
     Dosage: 40-40-40-40, TROPFEN (DROPS)
     Route: 048

REACTIONS (9)
  - General physical health deterioration [Unknown]
  - Dehydration [Unknown]
  - Vomiting [Unknown]
  - Pain [Unknown]
  - Abdominal pain [Unknown]
  - Nausea [Unknown]
  - Acute kidney injury [Unknown]
  - Product monitoring error [Unknown]
  - Labelled drug-drug interaction medication error [Unknown]
